FAERS Safety Report 13378238 (Version 1)
Quarter: 2017Q1

REPORT INFORMATION
  Report Type: Spontaneous
  Country: US (occurrence: US)
  Receive Date: 20170328
  Receipt Date: 20170328
  Transmission Date: 20170429
  Serious: Yes (Hospitalization)
  Sender: FDA-Public Use
  Company Number: US-B.I. PHARMACEUTICALS,INC./RIDGEFIELD-2017-BI-016757

PATIENT
  Sex: Male

DRUGS (1)
  1. COMBIVENT [Suspect]
     Active Substance: ALBUTEROL SULFATE\IPRATROPIUM BROMIDE
     Indication: ASTHMA
     Dosage: FORM STRENGTH: 18 MCG / 103 MCG;
     Route: 055
     Dates: end: 2013

REACTIONS (10)
  - Dysarthria [Unknown]
  - Fatigue [Unknown]
  - Memory impairment [Unknown]
  - Off label use [Unknown]
  - Cardiac disorder [Unknown]
  - Pneumonia [Unknown]
  - Panic attack [Unknown]
  - Dizziness [Unknown]
  - Dyspnoea [Unknown]
  - Concussion [Unknown]

NARRATIVE: CASE EVENT DATE: 2009
